FAERS Safety Report 10600424 (Version 1)
Quarter: 2014Q4

REPORT INFORMATION
  Report Type: Spontaneous
  Country: FR (occurrence: FR)
  Receive Date: 20141124
  Receipt Date: 20141124
  Transmission Date: 20150529
  Serious: Yes (Other)
  Sender: FDA-Public Use
  Company Number: FR-ROCHE-1495057

PATIENT
  Sex: Female

DRUGS (2)
  1. MIRCERA [Suspect]
     Active Substance: PEGZEREPOETIN ALFA
     Indication: NEPHROGENIC ANAEMIA
     Route: 058
  2. MIRCERA [Suspect]
     Active Substance: PEGZEREPOETIN ALFA
     Route: 042

REACTIONS (2)
  - Malaise [Recovered/Resolved]
  - Haemoglobin decreased [Recovered/Resolved]
